FAERS Safety Report 8487977-2 (Version None)
Quarter: 2012Q2

REPORT INFORMATION
  Report Type: 
  Country: None (occurrence: None)
  Receive Date: 20120627
  Receipt Date: 20120619
  Transmission Date: 20120825
  Serious: Yes (Hospitalization)
  Sender: FDA-Public Use
  Company Number: 2012HGS-003761

PATIENT
  Age: 59 Year
  Sex: Female

DRUGS (1)
  1. BENLYSTA [Suspect]
     Indication: SYSTEMIC LUPUS ERYTHEMATOSUS
     Dosage: INTRAVENOUS DRIP
     Route: 041
     Dates: start: 20120518

REACTIONS (7)
  - DEPRESSED MOOD [None]
  - CHEST PAIN [None]
  - SUICIDAL IDEATION [None]
  - GASTRITIS [None]
  - VOMITING [None]
  - HEART RATE DECREASED [None]
  - NAUSEA [None]
